FAERS Safety Report 11403166 (Version 10)
Quarter: 2020Q2

REPORT INFORMATION
  Report Type: Report from Study
  Country: US (occurrence: US)
  Receive Date: 20150821
  Receipt Date: 20200519
  Transmission Date: 20200713
  Serious: Yes (Other)
  Sender: FDA-Public Use
  Company Number: PHHY2015US070903

PATIENT
  Age: 49 Year
  Sex: Female

DRUGS (1)
  1. GILENYA [Suspect]
     Active Substance: FINGOLIMOD HYDROCHLORIDE
     Indication: MULTIPLE SCLEROSIS
     Dosage: UNK, QD
     Route: 048

REACTIONS (22)
  - Bladder discomfort [Unknown]
  - Micturition urgency [Not Recovered/Not Resolved]
  - Platelet count decreased [Unknown]
  - Leukopenia [Recovered/Resolved]
  - JC polyomavirus test positive [Not Recovered/Not Resolved]
  - Low density lipoprotein increased [Unknown]
  - Aspartate aminotransferase increased [Unknown]
  - Skin papilloma [Not Recovered/Not Resolved]
  - Urinary retention [Not Recovered/Not Resolved]
  - JC polyomavirus test positive [Recovered/Resolved]
  - Lymphopenia [Recovered/Resolved]
  - Gamma-glutamyltransferase decreased [Unknown]
  - Seborrhoeic keratosis [Recovered/Resolved]
  - Neutropenia [Recovered/Resolved]
  - Fatigue [Recovered/Resolved]
  - Blood alkaline phosphatase increased [Unknown]
  - Pollakiuria [Not Recovered/Not Resolved]
  - Dysaesthesia [Not Recovered/Not Resolved]
  - Alanine aminotransferase increased [Unknown]
  - Blood cholesterol increased [Unknown]
  - Burning sensation [Unknown]
  - Dermatitis [Recovered/Resolved]

NARRATIVE: CASE EVENT DATE: 20141215
